FAERS Safety Report 13109198 (Version 1)
Quarter: 2017Q1

REPORT INFORMATION
  Report Type: Spontaneous
  Country: JP (occurrence: JP)
  Receive Date: 20170112
  Receipt Date: 20170112
  Transmission Date: 20170428
  Serious: Yes (Life-Threatening, Other)
  Sender: FDA-Public Use
  Company Number: JP-ASTRAZENECA-2017SE02715

PATIENT
  Age: 33 Year
  Sex: Female

DRUGS (4)
  1. ANTIANXIETY DRUG (MEDICAL) [Concomitant]
     Dosage: 5 MG X 16 TABLETS ONCE/SINGLE ADMINISTRATION
     Route: 048
     Dates: start: 20161231, end: 20161231
  2. SEROQUEL [Suspect]
     Active Substance: QUETIAPINE FUMARATE
     Dosage: 850.0MG ONCE/SINGLE ADMINISTRATION
     Route: 048
     Dates: start: 20161231, end: 20161231
  3. MYSLEE [Suspect]
     Active Substance: ZOLPIDEM TARTRATE
     Dosage: 380.0MG ONCE/SINGLE ADMINISTRATION
     Route: 048
     Dates: start: 20161231, end: 20161231
  4. HYPNOTIC AND SEDATIVE AGENT [Concomitant]

REACTIONS (3)
  - Depressed level of consciousness [Unknown]
  - Intentional overdose [Unknown]
  - Suicide attempt [Unknown]

NARRATIVE: CASE EVENT DATE: 20161231
